FAERS Safety Report 10155644 (Version 1)
Quarter: 2014Q2

REPORT INFORMATION
  Report Type: Spontaneous
  Country: US (occurrence: US)
  Receive Date: 20140506
  Receipt Date: 20140506
  Transmission Date: 20141212
  Serious: Yes (Hospitalization)
  Sender: FDA-Public Use
  Company Number: US-GLAXOSMITHKLINE-A1071213A

PATIENT
  Age: 81 Year
  Sex: Female

DRUGS (14)
  1. ADVAIR [Suspect]
     Indication: PULMONARY FIBROSIS
     Dosage: 1PUFF PER DAY
     Route: 055
  2. NIASPAN [Concomitant]
  3. ASPIRIN [Concomitant]
  4. LEVOTHYROXIN [Concomitant]
  5. LEXAPRO [Concomitant]
  6. SAVELLA [Concomitant]
  7. TEMAZEPAM [Concomitant]
  8. CO-Q10 [Concomitant]
  9. BYSTOLIC [Concomitant]
  10. OMEGA 3 [Concomitant]
  11. FOLIC ACID [Concomitant]
  12. IRON SUPPLEMENT [Concomitant]
  13. VITAMIN D [Concomitant]
  14. OXYGEN [Concomitant]

REACTIONS (2)
  - Myocardial infarction [Recovered/Resolved]
  - Underdose [Unknown]
